FAERS Safety Report 18219548 (Version 1)
Quarter: 2020Q3

REPORT INFORMATION
  Report Type: Spontaneous
  Country: FR (occurrence: FR)
  Receive Date: 20200901
  Receipt Date: 20200901
  Transmission Date: 20201103
  Serious: Yes (Other)
  Sender: FDA-Public Use
  Company Number: FR-JNJFOC-20200830906

PATIENT
  Age: 56 Year
  Sex: Male

DRUGS (3)
  1. XEPLION [Suspect]
     Active Substance: PALIPERIDONE PALMITATE
  2. XEPLION [Suspect]
     Active Substance: PALIPERIDONE PALMITATE
     Indication: PRODUCT USED FOR UNKNOWN INDICATION
     Route: 030
     Dates: start: 2013
  3. XEPLION [Suspect]
     Active Substance: PALIPERIDONE PALMITATE
     Dosage: THE LAST INJECTION WAS PERFORMED ON 26?FEB?2020
     Route: 030
     Dates: start: 202001, end: 2020

REACTIONS (5)
  - Mental impairment [Unknown]
  - Injury [Unknown]
  - Pollakiuria [Unknown]
  - Hip surgery [Unknown]
  - Insomnia [Unknown]

NARRATIVE: CASE EVENT DATE: 2020
